FAERS Safety Report 8321486 (Version 3)
Quarter: 2015Q1

REPORT INFORMATION
  Report Type: Spontaneous
  Country: US (occurrence: US)
  Receive Date: 20120104
  Receipt Date: 20150310
  Transmission Date: 20150721
  Serious: Yes (Hospitalization, Other)
  Sender: FDA-Public Use
  Company Number: US-ROCHE-1026996

PATIENT
  Age: 61 Year
  Sex: Female

DRUGS (1)
  1. BONIVA [Suspect]
     Active Substance: IBANDRONATE SODIUM
     Indication: OSTEOPOROSIS
     Dosage: DOSE: 150 MG MONTHLY.
     Route: 065

REACTIONS (6)
  - Femur fracture [Unknown]
  - Arthritis bacterial [Unknown]
  - Foot fracture [Unknown]
  - Injury [Unknown]
  - Rheumatoid arthritis [Unknown]
  - Depression [Unknown]

NARRATIVE: CASE EVENT DATE: 20091221
